FAERS Safety Report 5624521-9 (Version None)
Quarter: 2008Q1

REPORT INFORMATION
  Report Type: 
  Country: None (occurrence: None)
  Receive Date: 20080213
  Receipt Date: 20080130
  Transmission Date: 20080703
  Serious: Yes (Hospitalization, Other)
  Sender: FDA-Public Use
  Company Number: US-AMGEN-STX263332

PATIENT
  Sex: Female

DRUGS (3)
  1. ENBREL [Suspect]
     Indication: PSORIATIC ARTHROPATHY
     Route: 058
     Dates: start: 20030501
  2. METHOTREXATE [Concomitant]
     Route: 048
     Dates: start: 20020101
  3. INSULIN [Concomitant]

REACTIONS (4)
  - BLEEDING TIME PROLONGED [None]
  - BONE LESION [None]
  - CHONDROPATHY [None]
  - DRUG INEFFECTIVE [None]
